FAERS Safety Report 8997748 (Version 3)
Quarter: 2013Q2

REPORT INFORMATION
  Report Type: Report from Study
  Country: CA (occurrence: CA)
  Receive Date: 20130104
  Receipt Date: 20130502
  Transmission Date: 20140414
  Serious: Yes (Hospitalization)
  Sender: FDA-Public Use
  Company Number: CA-ROCHE-1176658

PATIENT
  Sex: Female
  Weight: 86 kg

DRUGS (20)
  1. ACTEMRA [Suspect]
     Indication: TEMPORAL ARTERITIS
     Route: 042
     Dates: start: 20120905
  2. ACTEMRA [Suspect]
     Route: 042
     Dates: start: 20121001
  3. ACTEMRA [Suspect]
     Route: 042
     Dates: start: 20121025
  4. ACTEMRA [Suspect]
     Route: 042
     Dates: start: 20121122
  5. PREDNISONE [Concomitant]
  6. ARALEN [Concomitant]
  7. DYCLONINE [Concomitant]
  8. LORAZEPAM [Concomitant]
  9. ACETYLSALICYLIC ACID [Concomitant]
  10. NEXIUM [Concomitant]
  11. ATORVASTATIN [Concomitant]
  12. ELAVIL [Concomitant]
  13. IRBESARTAN [Concomitant]
  14. AMLODIPINE [Concomitant]
  15. CARBOCAL [Concomitant]
  16. LIPITOR [Concomitant]
  17. AVAPRO [Concomitant]
  18. CYCLOBENZAPRINE [Concomitant]
  19. RISENDROS [Concomitant]
  20. CITALOPRAM [Concomitant]

REACTIONS (1)
  - Ganglioneuroma [Recovering/Resolving]
